FAERS Safety Report 10433758 (Version 1)
Quarter: 2014Q3

REPORT INFORMATION
  Report Type: Spontaneous
  Country: US (occurrence: US)
  Receive Date: 20140905
  Receipt Date: 20140905
  Transmission Date: 20150326
  Serious: Yes (Other)
  Sender: FDA-Public Use
  Company Number: US-PFIZER INC-2014242482

PATIENT
  Age: 66 Year
  Sex: Male
  Weight: 106 kg

DRUGS (2)
  1. NEURONTIN [Suspect]
     Active Substance: GABAPENTIN
     Indication: NEURALGIA
     Dosage: UNK
     Dates: start: 2013, end: 2013
  2. DILAUDID [Concomitant]
     Active Substance: HYDROMORPHONE HYDROCHLORIDE
     Dosage: 4 MG, 4X/DAY

REACTIONS (3)
  - Abdominal pain upper [Unknown]
  - Haematochezia [Unknown]
  - Ulcer [Unknown]

NARRATIVE: CASE EVENT DATE: 2013
